FAERS Safety Report 14240338 (Version 2)
Quarter: 2018Q1

REPORT INFORMATION
  Report Type: Spontaneous
  Country: US (occurrence: US)
  Receive Date: 20171130
  Receipt Date: 20180320
  Transmission Date: 20180508
  Serious: No
  Sender: FDA-Public Use
  Company Number: US-MYLANLABS-2017M1074235

PATIENT
  Sex: Female
  Weight: 63.5 kg

DRUGS (9)
  1. MIDODRINE [Suspect]
     Active Substance: MIDODRINE
     Indication: PRODUCT USED FOR UNKNOWN INDICATION
     Dosage: UNK
  2. NORTHERA [Suspect]
     Active Substance: DROXIDOPA
     Dosage: NOT TITRATING 200 MG, AM
  3. NORTHERA [Suspect]
     Active Substance: DROXIDOPA
     Indication: PRODUCT USED FOR UNKNOWN INDICATION
     Dosage: 1800 MG, UNK
     Dates: start: 20170512
  4. NORTHERA [Suspect]
     Active Substance: DROXIDOPA
     Dosage: 300 MG, PM
     Dates: start: 20170606
  5. OXYCODONE [Concomitant]
     Active Substance: OXYCODONE
     Indication: PAIN
     Dosage: UNK
  6. NORTHERA [Suspect]
     Active Substance: DROXIDOPA
     Dosage: 600 MG, TID
  7. NORTHERA [Suspect]
     Active Substance: DROXIDOPA
     Dosage: NOT TITRATING 200 MG, PM
  8. NORTHERA [Suspect]
     Active Substance: DROXIDOPA
     Dosage: 300 MG, AM
     Dates: start: 20170606
  9. PREDNISONE. [Concomitant]
     Active Substance: PREDNISONE
     Indication: PRODUCT USED FOR UNKNOWN INDICATION
     Dosage: UNK

REACTIONS (14)
  - Abdominal discomfort [Recovered/Resolved]
  - Rash [Recovered/Resolved]
  - Peripheral coldness [Recovered/Resolved]
  - Anaemia [Recovered/Resolved]
  - Blood pressure increased [Recovered/Resolved]
  - Neuropathy peripheral [Recovered/Resolved]
  - Chest discomfort [Recovered/Resolved]
  - Glucose tolerance impaired [Recovered/Resolved]
  - Abdominal distension [Recovered/Resolved]
  - Paraesthesia [Recovered/Resolved]
  - Feeling hot [Recovered/Resolved]
  - Hypoaesthesia [Recovered/Resolved]
  - Hypotension [Recovered/Resolved]
  - Dizziness [Recovered/Resolved]
